FAERS Safety Report 19312367 (Version 1)
Quarter: 2021Q2

REPORT INFORMATION
  Report Type: Spontaneous
  Country: AU (occurrence: AU)
  Receive Date: 20210527
  Receipt Date: 20210527
  Transmission Date: 20210717
  Serious: Yes (Other)
  Sender: FDA-Public Use
  Company Number: AU-ALKEM LABORATORIES LIMITED-AU-ALKEM-2021-02896

PATIENT
  Age: 69 Year
  Sex: Female

DRUGS (1)
  1. EZETIMIBE. [Suspect]
     Active Substance: EZETIMIBE
     Indication: PRODUCT USED FOR UNKNOWN INDICATION
     Dosage: UNK
     Route: 065

REACTIONS (6)
  - Hypothyroidism [Unknown]
  - Diabetes mellitus [Unknown]
  - Hypertension [Unknown]
  - Drug ineffective [Unknown]
  - Obesity [Unknown]
  - Renal disorder [Unknown]
